FAERS Safety Report 10101547 (Version 2)
Quarter: 2014Q2

REPORT INFORMATION
  Report Type: Report from Study
  Country: CN (occurrence: CN)
  Receive Date: 20140424
  Receipt Date: 20140424
  Transmission Date: 20141212
  Serious: Yes (Other)
  Sender: FDA-Public Use
  Company Number: CN-BAYER-2014-028698

PATIENT
  Age: 47 Year
  Sex: Male

DRUGS (3)
  1. NEXAVAR [Suspect]
     Indication: HEPATIC CANCER METASTATIC
     Dosage: 400 MG, BID
     Dates: start: 20140219, end: 20140221
  2. NEXAVAR [Suspect]
     Indication: METASTASES TO LIVER
     Dosage: 400 MG, QD
     Dates: start: 20140222, end: 20140326
  3. NEXAVAR [Suspect]
     Indication: HEPATIC CANCER METASTATIC
     Dosage: 400 MG, BID
     Dates: start: 20140327

REACTIONS (3)
  - Dry mouth [None]
  - Pain [None]
  - Hepatic mass [Recovering/Resolving]
